FAERS Safety Report 18446738 (Version 1)
Quarter: 2020Q4

REPORT INFORMATION
  Report Type: Spontaneous
  Country: US (occurrence: US)
  Receive Date: 20201030
  Receipt Date: 20201030
  Transmission Date: 20210114
  Serious: Yes (Life-Threatening)
  Sender: FDA-Public Use
  Company Number: None

PATIENT
  Age: 80 Year
  Sex: Male
  Weight: 96.3 kg

DRUGS (7)
  1. PREDNISONE. [Concomitant]
     Active Substance: PREDNISONE
  2. SYNJARDY XR [Suspect]
     Active Substance: EMPAGLIFLOZIN\METFORMIN HYDROCHLORIDE
     Indication: DIABETES MELLITUS
     Route: 048
     Dates: start: 20200901, end: 20201012
  3. FINASTERIDE. [Concomitant]
     Active Substance: FINASTERIDE
  4. LANTUS [Concomitant]
     Active Substance: INSULIN GLARGINE
  5. ASPIRIN. [Concomitant]
     Active Substance: ASPIRIN
  6. ALFUZOSIN HCL [Concomitant]
     Active Substance: ALFUZOSIN HYDROCHLORIDE
  7. ROSUVASTATIN. [Concomitant]
     Active Substance: ROSUVASTATIN

REACTIONS (4)
  - Penile erythema [None]
  - Renal pain [None]
  - Penile pain [None]
  - Dysuria [None]

NARRATIVE: CASE EVENT DATE: 20201004
